FAERS Safety Report 13543326 (Version 1)
Quarter: 2017Q2

REPORT INFORMATION
  Report Type: Spontaneous
  Country: KR (occurrence: KR)
  Receive Date: 20170514
  Receipt Date: 20170514
  Transmission Date: 20170830
  Serious: Yes (Death)
  Sender: FDA-Public Use
  Company Number: PHHY2017KR069467

PATIENT
  Sex: Female

DRUGS (1)
  1. AFINITOR [Suspect]
     Active Substance: EVEROLIMUS
     Indication: BREAST CANCER
     Dosage: 10 MG, UNK
     Route: 065

REACTIONS (6)
  - Metastases to lung [Fatal]
  - Syncope [Fatal]
  - Feeding disorder [Fatal]
  - Hyperglycaemia [Fatal]
  - Metastases to bone [Fatal]
  - Hypoglycaemia [Fatal]
